FAERS Safety Report 11494715 (Version 1)
Quarter: 2015Q3

REPORT INFORMATION
  Report Type: Spontaneous
  Country: US (occurrence: US)
  Receive Date: 20150911
  Receipt Date: 20150911
  Transmission Date: 20151125
  Serious: Yes (Other)
  Sender: FDA-Public Use
  Company Number: US-ROCHE-780722

PATIENT
  Age: 59 Year
  Sex: Female
  Weight: 106.8 kg

DRUGS (6)
  1. COPEGUS [Suspect]
     Active Substance: RIBAVIRIN
     Indication: HEPATITIS C
     Route: 048
  2. PRILOSEC [Concomitant]
     Active Substance: OMEPRAZOLE MAGNESIUM
     Indication: GASTROOESOPHAGEAL REFLUX DISEASE
     Route: 048
  3. COPEGUS [Suspect]
     Active Substance: RIBAVIRIN
     Route: 048
  4. HYDROCHLOROTHIAZIDE. [Concomitant]
     Active Substance: HYDROCHLOROTHIAZIDE
     Indication: HYPERTENSION
     Route: 048
  5. PEGASYS [Suspect]
     Active Substance: PEGINTERFERON ALFA-2A
     Indication: HEPATITIS C
     Dosage: PRE-FILLED SYRINGE
     Route: 058
  6. PEGASYS [Suspect]
     Active Substance: PEGINTERFERON ALFA-2A
     Route: 058

REACTIONS (14)
  - Decreased appetite [Unknown]
  - Weight decreased [Unknown]
  - Confusional state [Unknown]
  - Stomatitis [Recovered/Resolved]
  - Nausea [Unknown]
  - Aphthous ulcer [Recovering/Resolving]
  - Hearing impaired [Unknown]
  - Visual impairment [Unknown]
  - Chills [Unknown]
  - Rash [Unknown]
  - Fatigue [Unknown]
  - Dizziness [Unknown]
  - Pyrexia [Unknown]
  - Malaise [Unknown]

NARRATIVE: CASE EVENT DATE: 20110526
